FAERS Safety Report 15650211 (Version 2)
Quarter: 2018Q4

REPORT INFORMATION
  Report Type: Spontaneous
  Country: US (occurrence: US)
  Receive Date: 20181123
  Receipt Date: 20181213
  Transmission Date: 20190205
  Serious: Yes (Other)
  Sender: FDA-Public Use
  Company Number: US-HORIZON-PRO-0241-2018

PATIENT
  Age: 33 Year
  Sex: Male

DRUGS (1)
  1. PROCYSBI [Suspect]
     Active Substance: CYSTEAMINE BITARTRATE
     Indication: CYSTINOSIS
     Dosage: 375 MG TWICE DAILY

REACTIONS (3)
  - Gastric infection [Recovered/Resolved]
  - Malaise [Recovered/Resolved]
  - Product dose omission [Unknown]
